FAERS Safety Report 12680422 (Version 1)
Quarter: 2016Q3

REPORT INFORMATION
  Report Type: Spontaneous
  Country: CN (occurrence: CN)
  Receive Date: 20160824
  Receipt Date: 20160824
  Transmission Date: 20161109
  Serious: Yes (Death, Other)
  Sender: FDA-Public Use
  Company Number: CN-PFIZER INC-2016396535

PATIENT
  Age: 58 Year
  Sex: Female

DRUGS (1)
  1. XALKORI [Suspect]
     Active Substance: CRIZOTINIB
     Indication: LUNG NEOPLASM MALIGNANT
     Dosage: 250 MG, 2X/DAY
     Route: 048
     Dates: start: 20160817

REACTIONS (9)
  - Death [Fatal]
  - Epilepsy [Unknown]
  - Urinary incontinence [Unknown]
  - Anal incontinence [Unknown]
  - Loss of consciousness [Unknown]
  - Dizziness [Unknown]
  - Trismus [Unknown]
  - Heart rate increased [Unknown]
  - Tic [Unknown]

NARRATIVE: CASE EVENT DATE: 20160817
